FAERS Safety Report 24605113 (Version 1)
Quarter: 2024Q4

REPORT INFORMATION
  Report Type: Spontaneous
  Country: US (occurrence: US)
  Receive Date: 20241111
  Receipt Date: 20241111
  Transmission Date: 20250115
  Serious: No
  Sender: PARATEK PHARMACEUTICALS
  Company Number: US-PARATEK PHARMACEUTICALS, INC.-2024PTK00401

PATIENT
  Age: 72 Year
  Sex: Male

DRUGS (3)
  1. NUZYRA [Suspect]
     Active Substance: OMADACYCLINE
     Indication: Skin bacterial infection
     Dosage: 450 MG, 1X/DAY
     Route: 048
     Dates: start: 20240510, end: 20240511
  2. NUZYRA [Suspect]
     Active Substance: OMADACYCLINE
     Indication: Wound infection
  3. NUZYRA [Suspect]
     Active Substance: OMADACYCLINE
     Indication: Cellulitis

REACTIONS (3)
  - Screaming [Recovered/Resolved]
  - Aggression [Recovered/Resolved]
  - Confusional state [Recovered/Resolved]

NARRATIVE: CASE EVENT DATE: 20240511
